FAERS Safety Report 12373158 (Version 1)
Quarter: 2016Q2

REPORT INFORMATION
  Report Type: Spontaneous
  Country: US (occurrence: US)
  Receive Date: 20160516
  Receipt Date: 20160516
  Transmission Date: 20160815
  Serious: Yes (Hospitalization, Disabling, Other)
  Sender: FDA-Public Use
  Company Number: US-TEVA-658536USA

PATIENT
  Sex: Male

DRUGS (1)
  1. COPAXONE [Suspect]
     Active Substance: GLATIRAMER ACETATE
     Indication: MULTIPLE SCLEROSIS
     Route: 058

REACTIONS (16)
  - Contusion [Recovered/Resolved]
  - Feeling abnormal [Recovered/Resolved]
  - Dysstasia [Not Recovered/Not Resolved]
  - Wound drainage [Unknown]
  - Hemiparesis [Recovered/Resolved]
  - Fine motor skill dysfunction [Recovered/Resolved]
  - Multiple sclerosis relapse [Recovered/Resolved]
  - Cellulitis [Unknown]
  - Fall [Recovered/Resolved]
  - White blood cell count increased [Unknown]
  - Hypertension [Unknown]
  - Bedridden [Recovered/Resolved]
  - Gait disturbance [Recovered/Resolved]
  - Asthenia [Recovered/Resolved]
  - Memory impairment [Recovered/Resolved]
  - Blister [Recovered/Resolved]

NARRATIVE: CASE EVENT DATE: 20160318
